FAERS Safety Report 11197208 (Version 1)
Quarter: 2015Q2

REPORT INFORMATION
  Report Type: Spontaneous
  Country: US (occurrence: US)
  Receive Date: 20150617
  Receipt Date: 20150617
  Transmission Date: 20150821
  Serious: No
  Sender: FDA-Public Use
  Company Number: US-SA-2014SA137823

PATIENT
  Age: 23 Year
  Sex: Female
  Weight: 51.8 kg

DRUGS (1)
  1. CEREZYME [Suspect]
     Active Substance: IMIGLUCERASE
     Indication: GAUCHER^S DISEASE
     Dosage: DOSE:60 UNIT(S)/KILOGRAM BODYWEIGHT
     Route: 041
     Dates: start: 19910604

REACTIONS (3)
  - Thrombocytopenia [Recovered/Resolved]
  - Exposure during pregnancy [Unknown]
  - Anaemia [Recovered/Resolved]

NARRATIVE: CASE EVENT DATE: 201012
